FAERS Safety Report 17328918 (Version 1)
Quarter: 2020Q1

REPORT INFORMATION
  Report Type: Spontaneous
  Country: NZ (occurrence: NZ)
  Receive Date: 20200127
  Receipt Date: 20200127
  Transmission Date: 20200409
  Serious: Yes (Hospitalization, Other)
  Sender: FDA-Public Use
  Company Number: NZ-AVION PHARMACEUTICALS, LLC-2079438

PATIENT
  Age: 48 Year
  Sex: Female

DRUGS (1)
  1. BALCOLTRA [Suspect]
     Active Substance: ETHINYL ESTRADIOL\LEVONORGESTREL
     Route: 019

REACTIONS (6)
  - Aortic intramural haematoma [Unknown]
  - Chest pain [Unknown]
  - Dyspnoea [Unknown]
  - Hyperhidrosis [Unknown]
  - Myocardial infarction [Unknown]
  - Stenosis [Recovered/Resolved]
